FAERS Safety Report 19291973 (Version 1)
Quarter: 2021Q2

REPORT INFORMATION
  Report Type: Spontaneous
  Country: FR (occurrence: FR)
  Receive Date: 20210524
  Receipt Date: 20210524
  Transmission Date: 20210717
  Serious: Yes (Life-Threatening, Hospitalization)
  Sender: FDA-Public Use
  Company Number: FR-SUN PHARMACEUTICAL INDUSTRIES LTD-2021RR-297553

PATIENT
  Age: 20 Year
  Sex: Female
  Weight: 45.5 kg

DRUGS (2)
  1. TRAMADOL. [Suspect]
     Active Substance: TRAMADOL
     Indication: POISONING DELIBERATE
     Dosage: 1000 MILLIGRAM, DAILY
     Route: 048
     Dates: start: 20210416, end: 20210416
  2. OPTIMIZETTE [Concomitant]
     Active Substance: DESOGESTREL
     Indication: CONTRACEPTION
     Dosage: 75 MICROGRAM, DAILY
     Route: 048

REACTIONS (4)
  - Visual impairment [Recovered/Resolved]
  - Poisoning deliberate [Recovered/Resolved]
  - Dyspnoea [Recovered/Resolved]
  - Chest pain [Recovered/Resolved]

NARRATIVE: CASE EVENT DATE: 20210416
